FAERS Safety Report 6385679-X (Version None)
Quarter: 2009Q4

REPORT INFORMATION
  Report Type: 
  Country: None (occurrence: None)
  Receive Date: 20091002
  Receipt Date: 20081024
  Transmission Date: 20100525
  Serious: No
  Sender: FDA-Public Use
  Company Number: US-ASTRAZENECA-2008UW23864

PATIENT
  Age: 53 Year
  Sex: Female

DRUGS (1)
  1. ARIMIDEX [Suspect]
     Indication: BREAST CANCER
     Route: 048
     Dates: start: 20081001

REACTIONS (5)
  - ABDOMINAL DISTENSION [None]
  - ACNE [None]
  - FEELING HOT [None]
  - HYPERHIDROSIS [None]
  - NIGHT SWEATS [None]
